FAERS Safety Report 24204104 (Version 1)
Quarter: 2024Q3

REPORT INFORMATION
  Report Type: Spontaneous
  Country: US (occurrence: US)
  Receive Date: 20240813
  Receipt Date: 20240813
  Transmission Date: 20241017
  Serious: Yes (Life-Threatening, Hospitalization, Other)
  Sender: MICRO LABS
  Company Number: US-862174955-ML2024-04349

PATIENT
  Age: 6 Decade
  Sex: Male

DRUGS (7)
  1. APIXABAN [Suspect]
     Active Substance: APIXABAN
     Indication: Pulmonary embolism
     Dosage: ON DAY 9, ENOXAPARIN WAS REPLACED WITH APIXABAN 10 MG TWICE DAILY
  2. APIXABAN [Suspect]
     Active Substance: APIXABAN
     Indication: Deep vein thrombosis
  3. ENOXAPARIN [Suspect]
     Active Substance: ENOXAPARIN
     Indication: Pulmonary embolism
     Dosage: SUBCUTANEOUS ENOXAPARIN 1 MG/KG TWICE A DAY
     Route: 058
  4. ENOXAPARIN [Suspect]
     Active Substance: ENOXAPARIN
     Indication: Deep vein thrombosis
  5. DEVICE [Suspect]
     Active Substance: DEVICE
     Indication: Injection site pain
     Dosage: SINCE DAY 7
  6. DEXAMETHASONE [Concomitant]
     Active Substance: DEXAMETHASONE
     Indication: Product used for unknown indication
  7. REMDESIVIR [Concomitant]
     Active Substance: REMDESIVIR
     Indication: Product used for unknown indication

REACTIONS (3)
  - Urinary tract obstruction [Unknown]
  - Hydronephrosis [Unknown]
  - Retroperitoneal haematoma [Unknown]
